FAERS Safety Report 23222458 (Version 1)
Quarter: 2023Q4

REPORT INFORMATION
  Report Type: Spontaneous
  Country: EG (occurrence: EG)
  Receive Date: 20231123
  Receipt Date: 20231123
  Transmission Date: 20240110
  Serious: Yes (Life-Threatening, Hospitalization, Other)
  Sender: FDA-Public Use
  Company Number: EG-HIKMA PHARMACEUTICALS-EG-H14001-23-67206

PATIENT

DRUGS (1)
  1. PACLITAXEL [Suspect]
     Active Substance: PACLITAXEL
     Indication: Lung neoplasm malignant
     Dosage: 100 MILLIGRAM, 3W
     Route: 041
     Dates: start: 20231004

REACTIONS (7)
  - Dyspnoea [Unknown]
  - Tachycardia [Recovered/Resolved]
  - Chest pain [Unknown]
  - Cough [Unknown]
  - Walking disability [Recovered/Resolved]
  - Hemiplegia [Recovered/Resolved]
  - Deep vein thrombosis [Recovered/Resolved]

NARRATIVE: CASE EVENT DATE: 20231004
